FAERS Safety Report 9272576 (Version 2)
Quarter: 2013Q2

REPORT INFORMATION
  Report Type: Spontaneous
  Country: GB (occurrence: GB)
  Receive Date: 20130506
  Receipt Date: 20130521
  Transmission Date: 20140414
  Serious: Yes (Other)
  Sender: FDA-Public Use
  Company Number: GB-GLAXOSMITHKLINE-B0888747A

PATIENT
  Age: 32 Year
  Sex: Male

DRUGS (3)
  1. TROBALT [Suspect]
     Indication: PARTIAL SEIZURES
     Dosage: 150MG THREE TIMES PER DAY
     Dates: start: 201210, end: 201302
  2. LAMOTRIGINE [Concomitant]
  3. ZONISAMIDE [Concomitant]

REACTIONS (2)
  - Convulsion [Recovered/Resolved]
  - Thinking abnormal [Recovered/Resolved]
